FAERS Safety Report 19806079 (Version 1)
Quarter: 2021Q3

REPORT INFORMATION
  Report Type: Spontaneous
  Country: CA (occurrence: CA)
  Receive Date: 20210908
  Receipt Date: 20210908
  Transmission Date: 20211014
  Serious: Yes (Life-Threatening, Other)
  Sender: FDA-Public Use
  Company Number: CA-ASTRAZENECA-2021A477814

PATIENT
  Age: 73 Year
  Sex: Male
  Weight: 83.5 kg

DRUGS (13)
  1. ACALABRUTINIB. [Suspect]
     Active Substance: ACALABRUTINIB
     Indication: TP53 GENE MUTATION
     Route: 048
     Dates: start: 20210406, end: 20210423
  2. ACALABRUTINIB. [Suspect]
     Active Substance: ACALABRUTINIB
     Indication: TP53 GENE MUTATION
     Route: 048
     Dates: start: 20210423, end: 20210514
  3. RIVAROXBAN [Concomitant]
     Active Substance: RIVAROXABAN
     Indication: DEEP VEIN THROMBOSIS
     Route: 065
  4. PREDNISONE. [Concomitant]
     Active Substance: PREDNISONE
     Route: 048
     Dates: start: 20210316
  5. BISOPROLOL [Concomitant]
     Active Substance: BISOPROLOL
     Indication: HYPERTENSION
     Route: 065
  6. INDAPAMIDE. [Concomitant]
     Active Substance: INDAPAMIDE
     Indication: HYPERTENSION
     Route: 065
  7. PREDNISONE. [Concomitant]
     Active Substance: PREDNISONE
     Route: 048
     Dates: start: 20210316
  8. NIFEDIPINE. [Concomitant]
     Active Substance: NIFEDIPINE
     Indication: HYPERTENSION
     Route: 065
  9. VITAMIN B12 [Concomitant]
     Active Substance: CYANOCOBALAMIN
     Route: 065
  10. ACALABRUTINIB. [Suspect]
     Active Substance: ACALABRUTINIB
     Indication: ACQUIRED GENE MUTATION
     Route: 048
     Dates: start: 20210406, end: 20210423
  11. LEVOTHYROXINE. [Concomitant]
     Active Substance: LEVOTHYROXINE
     Indication: HYPOTHYROIDISM
     Route: 065
  12. ACALABRUTINIB. [Suspect]
     Active Substance: ACALABRUTINIB
     Indication: ACQUIRED GENE MUTATION
     Route: 048
     Dates: start: 20210423, end: 20210514
  13. METFORMIN [Concomitant]
     Active Substance: METFORMIN HYDROCHLORIDE
     Indication: DIABETES MELLITUS
     Route: 065

REACTIONS (10)
  - Sleep disorder [Unknown]
  - Dizziness [Recovered/Resolved]
  - Visual acuity tests abnormal [Unknown]
  - Hunger [Unknown]
  - Atrioventricular block first degree [Unknown]
  - Anaemia macrocytic [Unknown]
  - Salivary hypersecretion [Recovered/Resolved]
  - Balance disorder [Recovering/Resolving]
  - Epistaxis [Unknown]
  - Tremor [Recovering/Resolving]
